FAERS Safety Report 19416161 (Version 1)
Quarter: 2021Q2

REPORT INFORMATION
  Report Type: Spontaneous
  Country: US (occurrence: US)
  Receive Date: 20210615
  Receipt Date: 20210615
  Transmission Date: 20210717
  Serious: No
  Sender: FDA-Public Use
  Company Number: US-ALLERGAN-2038180US

PATIENT
  Age: 50 Year
  Sex: Female

DRUGS (1)
  1. KYBELLA [Suspect]
     Active Substance: DEOXYCHOLIC ACID
     Indication: PRODUCT USED FOR UNKNOWN INDICATION
     Dosage: UNK, SINGLE
     Dates: start: 20200918, end: 20200918

REACTIONS (8)
  - Salivary hypersecretion [Recovering/Resolving]
  - Injection site bruising [Recovering/Resolving]
  - Vascular injury [Recovering/Resolving]
  - Scab [Recovering/Resolving]
  - Ear pain [Unknown]
  - Erythema [Recovering/Resolving]
  - Oral mucosa haematoma [Recovering/Resolving]
  - Wrong technique in product usage process [Unknown]

NARRATIVE: CASE EVENT DATE: 20200918
